FAERS Safety Report 7202121-7 (Version None)
Quarter: 2010Q4

REPORT INFORMATION
  Report Type: 
  Country: None (occurrence: None)
  Receive Date: 20101229
  Receipt Date: 20101216
  Transmission Date: 20110411
  Serious: Yes (Hospitalization)
  Sender: FDA-Public Use
  Company Number: DE-GENENTECH-311560

PATIENT
  Sex: Female
  Weight: 84 kg

DRUGS (4)
  1. RITUXIMAB [Suspect]
     Indication: RHEUMATOID ARTHRITIS
     Dosage: 1000 MG, UNK
     Route: 042
     Dates: start: 20100608
  2. ATACAND [Concomitant]
     Indication: HYPERTENSION
     Dosage: UNK
     Route: 048
  3. BISOPROLOL [Concomitant]
     Indication: HYPERTENSION
     Dosage: UNK
     Route: 048
  4. LEVOTHYROXINE SODIUM [Concomitant]
     Indication: THYROID DISORDER
     Dosage: UNK
     Route: 048

REACTIONS (1)
  - RENAL CELL CARCINOMA [None]
